FAERS Safety Report 7441057-3 (Version None)
Quarter: 2011Q2

REPORT INFORMATION
  Report Type: 
  Country: None (occurrence: None)
  Receive Date: 20110427
  Receipt Date: 20100826
  Transmission Date: 20111010
  Serious: Yes (Death, Hospitalization, Other)
  Sender: FDA-Public Use
  Company Number: PHHY2010AR91482

PATIENT
  Age: 53 Year
  Sex: Male

DRUGS (1)
  1. IMATINIB [Suspect]
     Dosage: 400 MG, DAILY
     Route: 048
     Dates: start: 20091201

REACTIONS (5)
  - DISEASE RECURRENCE [None]
  - PLATELET COUNT DECREASED [None]
  - MYALGIA [None]
  - MALAISE [None]
  - DEATH [None]
